FAERS Safety Report 15175319 (Version 1)
Quarter: 2018Q3

REPORT INFORMATION
  Report Type: Report from Study
  Country: US (occurrence: US)
  Receive Date: 20180720
  Receipt Date: 20180720
  Transmission Date: 20181010
  Serious: No
  Sender: FDA-Public Use
  Company Number: US-AMGEN-USASL2018065283

PATIENT
  Age: 66 Year
  Sex: Male

DRUGS (1)
  1. REPATHA [Suspect]
     Active Substance: EVOLOCUMAB
     Indication: TYPE V HYPERLIPIDAEMIA
     Dosage: 140 MG, Q2WK
     Route: 058

REACTIONS (6)
  - Injection site hypoaesthesia [Unknown]
  - Fatigue [Unknown]
  - Abdominal pain upper [Unknown]
  - Influenza like illness [Recovering/Resolving]
  - Diarrhoea [Unknown]
  - Back pain [Unknown]
